FAERS Safety Report 12104789 (Version 1)
Quarter: 2016Q1

REPORT INFORMATION
  Report Type: Spontaneous
  Country: US (occurrence: US)
  Receive Date: 20160223
  Receipt Date: 20160223
  Transmission Date: 20160526
  Serious: No
  Sender: FDA-Public Use
  Company Number: US-PFIZER INC-2016050016

PATIENT
  Age: 78 Year

DRUGS (10)
  1. CARDURA [Suspect]
     Active Substance: DOXAZOSIN MESYLATE
     Dosage: UNK
  2. PREVACID [Suspect]
     Active Substance: LANSOPRAZOLE
     Dosage: UNK
  3. LIPITOR [Suspect]
     Active Substance: ATORVASTATIN CALCIUM
     Dosage: UNK
  4. ALLEGRA [Suspect]
     Active Substance: FEXOFENADINE HYDROCHLORIDE
     Dosage: UNK
  5. KAPIDEX [Suspect]
     Active Substance: DEXLANSOPRAZOLE
     Dosage: UNK
  6. PROPULSID [Suspect]
     Active Substance: CISAPRIDE
     Dosage: UNK
  7. SINGULAIR [Suspect]
     Active Substance: MONTELUKAST SODIUM
     Dosage: UNK
  8. RANEXA [Suspect]
     Active Substance: RANOLAZINE
     Dosage: UNK
  9. ZOCOR [Suspect]
     Active Substance: SIMVASTATIN
     Dosage: UNK
  10. CIPRO [Suspect]
     Active Substance: CIPROFLOXACIN HYDROCHLORIDE
     Dosage: UNK
     Route: 048

REACTIONS (1)
  - Drug hypersensitivity [Unknown]
